FAERS Safety Report 4674413-7 (Version None)
Quarter: 2005Q2

REPORT INFORMATION
  Report Type: 
  Country: None (occurrence: None)
  Receive Date: 20050524
  Receipt Date: 20050506
  Transmission Date: 20051028
  Serious: Yes (Other)
  Sender: FDA-Public Use
  Company Number: USA050597448

PATIENT
  Sex: Male

DRUGS (3)
  1. GEMZAR [Suspect]
     Indication: PANCREATIC CARCINOMA METASTATIC
     Dates: start: 20050301
  2. TARCEVA [Concomitant]
  3. CORTICOSTEROID NOS [Concomitant]

REACTIONS (2)
  - BRONCHOSPASM [None]
  - INTERSTITIAL LUNG DISEASE [None]
